FAERS Safety Report 6227299-3 (Version None)
Quarter: 2009Q2

REPORT INFORMATION
  Report Type: 
  Country: None (occurrence: None)
  Receive Date: 20090610
  Receipt Date: 20090528
  Transmission Date: 20091009
  Serious: No
  Sender: FDA-Public Use
  Company Number: 2009-197655-NL

PATIENT
  Age: 15 Year
  Sex: Female

DRUGS (1)
  1. ETONOGESTREL              (BATCH #: 347456/396921) [Suspect]
     Indication: CONTRACEPTION
     Dosage: DF SUBDERMAL
     Route: 059
     Dates: start: 20081206, end: 20090321

REACTIONS (2)
  - BLINDNESS TRANSIENT [None]
  - HEADACHE [None]
